FAERS Safety Report 8196975-8 (Version None)
Quarter: 2012Q1

REPORT INFORMATION
  Report Type: 
  Country: None (occurrence: None)
  Receive Date: 20120307
  Receipt Date: 20120227
  Transmission Date: 20120608
  Serious: Yes (Other)
  Sender: FDA-Public Use
  Company Number: 2011SP055448

PATIENT
  Sex: Female

DRUGS (4)
  1. PROMETHAZINE [Suspect]
     Indication: NAUSEA
     Dosage: 12.5 MG;UNK;UNK
  2. VICTRELIS [Suspect]
     Indication: HEPATITIS C
     Dosage: ;UNK;UNK
     Dates: start: 20111007, end: 20111130
  3. PEGASYS [Suspect]
     Indication: HEPATITIS C
     Dosage: ;UNK;UNK
     Dates: start: 20110909, end: 20120217
  4. RIBAVIRIN [Suspect]
     Indication: HEPATITIS C
     Dosage: ;UNK;UNK
     Dates: start: 20110909, end: 20120217

REACTIONS (14)
  - INFECTION [None]
  - DRUG INEFFECTIVE [None]
  - WHITE BLOOD CELL COUNT DECREASED [None]
  - DYSPNOEA [None]
  - SCRATCH [None]
  - FATIGUE [None]
  - INSOMNIA [None]
  - HYPERHIDROSIS [None]
  - FEELING ABNORMAL [None]
  - ASTHENIA [None]
  - INJECTION SITE INFECTION [None]
  - DRUG HYPERSENSITIVITY [None]
  - DIZZINESS [None]
  - RED BLOOD CELL COUNT DECREASED [None]
